FAERS Safety Report 25821485 (Version 1)
Quarter: 2025Q3

REPORT INFORMATION
  Report Type: Spontaneous
  Country: BR (occurrence: BR)
  Receive Date: 20250919
  Receipt Date: 20250919
  Transmission Date: 20251020
  Serious: Yes (Other)
  Sender: GENMAB
  Company Number: BR-ABBVIE-6237069

PATIENT
  Sex: Female

DRUGS (4)
  1. EPCORITAMAB [Suspect]
     Active Substance: EPCORITAMAB
     Indication: Non-Hodgkin^s lymphoma
     Route: 058
  2. EPCORITAMAB [Suspect]
     Active Substance: EPCORITAMAB
     Route: 058
  3. IBRUTINIB [Suspect]
     Active Substance: IBRUTINIB
     Indication: Non-Hodgkin^s lymphoma
     Route: 048
  4. IBRUTINIB [Suspect]
     Active Substance: IBRUTINIB
     Route: 048

REACTIONS (2)
  - Non-Hodgkin^s lymphoma [Unknown]
  - Off label use [Unknown]
